FAERS Safety Report 5533096-4 (Version None)
Quarter: 2007Q4

REPORT INFORMATION
  Report Type: 
  Country: None (occurrence: None)
  Receive Date: 20071204
  Receipt Date: 20071120
  Transmission Date: 20080405
  Serious: Yes (Hospitalization)
  Sender: FDA-Public Use
  Company Number: DE-AMGEN-UK124767

PATIENT
  Sex: Male

DRUGS (3)
  1. PALIFERMIN [Suspect]
     Indication: MUCOSAL INFLAMMATION
     Route: 040
     Dates: start: 20050318
  2. XYLOMETAZOLINE [Concomitant]
     Route: 045
     Dates: start: 20050318, end: 20050405
  3. ZOPICLONE [Concomitant]
     Route: 048
     Dates: start: 20050321, end: 20050405

REACTIONS (2)
  - RESPIRATORY FAILURE [None]
  - TONGUE OEDEMA [None]
